FAERS Safety Report 5924957-2 (Version None)
Quarter: 2008Q3

REPORT INFORMATION
  Report Type: 
  Country: None (occurrence: None)
  Receive Date: 20080909
  Receipt Date: 20080506
  Transmission Date: 20090109
  Serious: Yes (Hospitalization)
  Sender: FDA-Public Use
  Company Number: 163-20785-08021782

PATIENT
  Age: 65 Year
  Sex: Male

DRUGS (2)
  1. THALOMID [Suspect]
     Indication: MULTIPLE MYELOMA
     Dosage: AD, DAILY, ORAL ; 100-200MG, DAILY, ORAL
     Route: 048
     Dates: start: 20050305, end: 20050817
  2. THALOMID [Suspect]
     Indication: MULTIPLE MYELOMA
     Dosage: AD, DAILY, ORAL ; 100-200MG, DAILY, ORAL
     Route: 048
     Dates: start: 20080101

REACTIONS (1)
  - DEEP VEIN THROMBOSIS [None]
